FAERS Safety Report 22151432 (Version 6)
Quarter: 2023Q2

REPORT INFORMATION
  Report Type: Spontaneous
  Country: US (occurrence: US)
  Receive Date: 20230329
  Receipt Date: 20230522
  Transmission Date: 20230721
  Serious: Yes (Hospitalization, Disabling, Other)
  Sender: FDA-Public Use
  Company Number: US-PFIZER INC-2020343198

PATIENT
  Age: 48 Year
  Sex: Male

DRUGS (4)
  1. XYNTHA [Suspect]
     Active Substance: ANTIHEMOPHILIC FACTOR, HUMAN RECOMBINANT RESIDUES 743-1636 DELETED
     Indication: Limb injury
     Dosage: 2000 IU, AS NEEDED (INFUSE 2000 U QD PRN)
  2. XYNTHA [Suspect]
     Active Substance: ANTIHEMOPHILIC FACTOR, HUMAN RECOMBINANT RESIDUES 743-1636 DELETED
     Indication: Haemorrhage
     Dosage: 4000 IU, AS NEEDED (INFUSE 4000 IU TIW + PRN BLEEDING/ONE DOSE QD PRN)
  3. XYNTHA [Suspect]
     Active Substance: ANTIHEMOPHILIC FACTOR, HUMAN RECOMBINANT RESIDUES 743-1636 DELETED
     Dosage: INFUSE 4000 UNITS DAILY X 2 WEEKS POST-OP.
  4. XYNTHA [Suspect]
     Active Substance: ANTIHEMOPHILIC FACTOR, HUMAN RECOMBINANT RESIDUES 743-1636 DELETED
     Dosage: INFUSE 4000 UNITS TIW X 2 WEEKS.

REACTIONS (3)
  - Neoplasm [Unknown]
  - Pain [Unknown]
  - Off label use [Unknown]
